FAERS Safety Report 11245849 (Version 2)
Quarter: 2015Q3

REPORT INFORMATION
  Report Type: Report from Study
  Country: BR (occurrence: BR)
  Receive Date: 20150707
  Receipt Date: 20150724
  Transmission Date: 20151125
  Serious: No
  Sender: FDA-Public Use
  Company Number: BR-ABBVIE-15K-020-1421292-00

PATIENT
  Age: 32 Year
  Sex: Female
  Weight: 52 kg

DRUGS (4)
  1. AZATHIOPRINE. [Concomitant]
     Active Substance: AZATHIOPRINE
     Indication: CROHN^S DISEASE
     Route: 048
     Dates: start: 2013
  2. HUMIRA [Suspect]
     Active Substance: ADALIMUMAB
     Indication: CROHN^S DISEASE
     Dosage: LOADING DOSE; WEEK 0
     Route: 058
     Dates: start: 20150525, end: 20150525
  3. HUMIRA [Suspect]
     Active Substance: ADALIMUMAB
     Route: 058
     Dates: start: 201506, end: 20150623
  4. HUMIRA [Suspect]
     Active Substance: ADALIMUMAB
     Dosage: LOADING DOSE; WEEK 2
     Route: 058
     Dates: start: 201506, end: 201506

REACTIONS (1)
  - Injection site discolouration [Not Recovered/Not Resolved]

NARRATIVE: CASE EVENT DATE: 20150623
